FAERS Safety Report 4456798-X (Version None)
Quarter: 2004Q3

REPORT INFORMATION
  Report Type: 
  Country: None (occurrence: None)
  Receive Date: 20040921
  Receipt Date: 20040915
  Transmission Date: 20050211
  Serious: Yes (Hospitalization)
  Sender: FDA-Public Use
  Company Number: 208815

PATIENT
  Age: 24 Year
  Sex: Male

DRUGS (2)
  1. CATHFLO ACTIVASE [Suspect]
     Indication: CATHETER RELATED COMPLICATION
     Dosage: 2MG, SINGLE, INTRACATHETER
     Dates: start: 20040810, end: 20040810
  2. NAFCILLIN (NAFCILLIN SODIUM) [Concomitant]

REACTIONS (4)
  - DEVICE FAILURE [None]
  - INTERNATIONAL NORMALISED RATIO ABNORMAL [None]
  - MEDICATION ERROR [None]
  - PULMONARY ARTERY THROMBOSIS [None]
